FAERS Safety Report 18271370 (Version 2)
Quarter: 2020Q4

REPORT INFORMATION
  Report Type: Report from Study
  Country: None (occurrence: US)
  Receive Date: 20200915
  Receipt Date: 20201026
  Transmission Date: 20210113
  Serious: Yes (Hospitalization)
  Sender: FDA-Public Use
  Company Number: US-ABBVIE-20K-163-3565720-00

PATIENT
  Sex: Male
  Weight: 76.73 kg

DRUGS (8)
  1. REGLAN [Concomitant]
     Active Substance: METOCLOPRAMIDE HYDROCHLORIDE
     Indication: GASTROINTESTINAL MOTILITY DISORDER
  2. CREON [Suspect]
     Active Substance: PANCRELIPASE AMYLASE\PANCRELIPASE LIPASE\PANCRELIPASE PROTEASE
     Indication: PANCREATIC FAILURE
  3. PROTONIX [Concomitant]
     Active Substance: PANTOPRAZOLE SODIUM
     Indication: GASTROOESOPHAGEAL REFLUX DISEASE
  4. CELEBREX [Concomitant]
     Active Substance: CELECOXIB
     Indication: NEURALGIA
  5. VITAMIN D3 [Concomitant]
     Active Substance: CHOLECALCIFEROL
     Indication: VITAMIN SUPPLEMENTATION
  6. CREON [Suspect]
     Active Substance: PANCRELIPASE AMYLASE\PANCRELIPASE LIPASE\PANCRELIPASE PROTEASE
     Indication: PANCREATITIS CHRONIC
     Dosage: 15-16 CAPSULES PER DAY. 3 WITH MEALS,1 WITH SNACK. EATS SNACK EVERY 2-3 HOURS
     Route: 048
     Dates: start: 202008
  7. ZOFRAN [Concomitant]
     Active Substance: ONDANSETRON HYDROCHLORIDE
     Indication: NAUSEA
  8. PROMETHAZINE [Concomitant]
     Active Substance: PROMETHAZINE HYDROCHLORIDE
     Indication: NAUSEA

REACTIONS (7)
  - Hypotension [Recovering/Resolving]
  - Splenic artery aneurysm [Recovering/Resolving]
  - Haematemesis [Recovering/Resolving]
  - Haematochezia [Recovering/Resolving]
  - Gallbladder disorder [Recovering/Resolving]
  - Haemorrhage [Recovering/Resolving]
  - Abdominal pain [Recovering/Resolving]

NARRATIVE: CASE EVENT DATE: 2020
